FAERS Safety Report 10152239 (Version 1)
Quarter: 2014Q2

REPORT INFORMATION
  Report Type: Spontaneous
  Country: US (occurrence: None)
  Receive Date: 20140502
  Receipt Date: 20140502
  Transmission Date: 20141212
  Serious: Yes (Other)
  Sender: FDA-Public Use
  Company Number: None

PATIENT
  Age: 25 Year
  Sex: Female
  Weight: 79.83 kg

DRUGS (1)
  1. METRONIDAZOLE [Suspect]
     Indication: TRICHOMONIASIS
     Dosage: 500, TWICE DAILY, TAKEN BY MOUTH
     Route: 048
     Dates: start: 20140405, end: 20140501

REACTIONS (2)
  - Vaginal haemorrhage [None]
  - Gastrointestinal disorder [None]
